FAERS Safety Report 5121030-0 (Version None)
Quarter: 2006Q4

REPORT INFORMATION
  Report Type: 
  Country: None (occurrence: None)
  Receive Date: 20061002
  Receipt Date: 20060913
  Transmission Date: 20070319
  Serious: Yes (Other)
  Sender: FDA-Public Use
  Company Number: GB200609002795

PATIENT
  Age: 7 Year
  Sex: Male

DRUGS (3)
  1. FLUOXETINE [Suspect]
     Dosage: 20 MG, DAILY (1/D)
  2. ATOMOXETINE HYDROCHLORIDE  (TOMOXETINE HYDROCHLORIDE) [Concomitant]
  3. RISPERIDONE [Concomitant]

REACTIONS (1)
  - ACUTE MYELOID LEUKAEMIA [None]
